FAERS Safety Report 19596735 (Version 4)
Quarter: 2021Q3

REPORT INFORMATION
  Report Type: Report from Study
  Country: CA (occurrence: CA)
  Receive Date: 20210722
  Receipt Date: 20210804
  Transmission Date: 20211014
  Serious: Yes (Hospitalization, Other)
  Sender: FDA-Public Use
  Company Number: CA-BIOVITRUM-2021CA6852

PATIENT
  Age: 3 Month
  Sex: Male
  Weight: 6.37 kg

DRUGS (13)
  1. CLOTRIMAZOLE. [Concomitant]
     Active Substance: CLOTRIMAZOLE
     Route: 061
  2. FLUCONAZOLE. [Concomitant]
     Active Substance: FLUCONAZOLE
     Dosage: 10 MG/ML
     Route: 048
  3. LANSOPRAZOLE. [Concomitant]
     Active Substance: LANSOPRAZOLE
     Dosage: DELAYED RELEASE DISINTEGRATING TABLETS?30 DAYS
     Route: 048
  4. ENOXAPARIN [Concomitant]
     Active Substance: ENOXAPARIN
     Dosage: 100 MG/ML
     Route: 058
  5. EMAPALUMAB. [Suspect]
     Active Substance: EMAPALUMAB
     Route: 041
     Dates: start: 20210706, end: 20210706
  6. DEXAMETHASONE. [Concomitant]
     Active Substance: DEXAMETHASONE
     Dosage: 1 MG/ML (0.38 MG)?28 DOSES
     Route: 048
  7. EMAPALUMAB. [Suspect]
     Active Substance: EMAPALUMAB
     Route: 041
     Dates: start: 20210709, end: 20210709
  8. EMAPALUMAB. [Suspect]
     Active Substance: EMAPALUMAB
     Indication: FAMILIAL HAEMOPHAGOCYTIC LYMPHOHISTIOCYTOSIS
     Route: 041
     Dates: start: 20210702, end: 20210702
  9. SEPTRA [Concomitant]
     Active Substance: SULFAMETHOXAZOLE\TRIMETHOPRIM
     Dosage: 100?20 MG ?1.5 TABLET (30 MG TRIMETHOPRIM)?ONCE DAILY ON FRIDAY SATURDAY AND SUNDAY
  10. EMAPALUMAB. [Suspect]
     Active Substance: EMAPALUMAB
     Route: 041
     Dates: start: 20210714, end: 20210714
  11. CEFAZOLIN [Concomitant]
     Active Substance: CEFAZOLIN
     Route: 042
  12. ACYCLOVIR. [Concomitant]
     Active Substance: ACYCLOVIR
     Route: 048
  13. ZINC OXIDE. [Concomitant]
     Active Substance: ZINC OXIDE
     Dosage: 4 PERCENT ?AS NEEDED
     Route: 061

REACTIONS (2)
  - Cytomegalovirus infection [Recovering/Resolving]
  - Respiratory distress [Recovering/Resolving]

NARRATIVE: CASE EVENT DATE: 20210713
